FAERS Safety Report 5470814-8 (Version None)
Quarter: 2007Q3

REPORT INFORMATION
  Report Type: 
  Country: None (occurrence: None)
  Receive Date: 20070928
  Receipt Date: 20070914
  Transmission Date: 20080115
  Serious: Yes (Hospitalization)
  Sender: FDA-Public Use
  Company Number: FR-GENENTECH-242079

PATIENT
  Age: 51 Year
  Sex: Male

DRUGS (5)
  1. AVASTIN [Suspect]
     Indication: COLORECTAL CANCER
     Dosage: UNK, UNK
     Dates: start: 20070308
  2. FLUOROURACIL [Suspect]
     Indication: RECTOSIGMOID CANCER
     Route: 042
     Dates: start: 20070308
  3. IRINOTECAN HCL [Suspect]
     Indication: COLORECTAL CANCER
     Route: 042
     Dates: start: 20070308
  4. LEUCOVORIN [Concomitant]
     Indication: DRUG USE FOR UNKNOWN INDICATION
     Dates: start: 20070308
  5. PHENOBARBITAL TAB [Concomitant]
     Indication: EPILEPSY
     Dates: start: 20070407

REACTIONS (1)
  - EPILEPSY [None]
